FAERS Safety Report 9694649 (Version 1)
Quarter: 2013Q4

REPORT INFORMATION
  Report Type: Report from Study
  Country: AU (occurrence: AU)
  Receive Date: 20131119
  Receipt Date: 20131119
  Transmission Date: 20140711
  Serious: Yes (Death, Hospitalization)
  Sender: FDA-Public Use
  Company Number: AU-009507513-1311AUS003416

PATIENT
  Age: 64 Year
  Sex: Female

DRUGS (8)
  1. DEXAMETHASONE [Suspect]
     Dosage: 4 MG, UNK
     Route: 042
     Dates: start: 20130529, end: 20130619
  2. CETUXIMAB [Suspect]
     Indication: METASTATIC SQUAMOUS CELL CARCINOMA
     Dosage: 335 MG, 1 IN 1 WEEK
     Route: 042
     Dates: start: 20130529, end: 20130619
  3. THYROXIN [Concomitant]
     Indication: HYPOTHYROIDISM
     Dosage: 50 MG, UNK
     Route: 048
  4. MORPHINE SULFATE [Concomitant]
     Indication: PAIN
     Dosage: 2 MG, UNK
     Route: 048
  5. FENTANYL CITRATE [Concomitant]
     Indication: PAIN
     Dosage: UNK
     Route: 062
     Dates: start: 20130601
  6. AUGMENTIN DUO [Concomitant]
     Indication: PRODUCTIVE COUGH
     Dosage: 475 MG, UNK
     Route: 048
     Dates: start: 20130619, end: 20130625
  7. IMODIUM [Concomitant]
     Indication: DIARRHOEA
     Dosage: 2 MG, UNK
     Route: 048
     Dates: start: 20130626, end: 20130702
  8. LORATINE [Concomitant]
     Dosage: 10 MG, UNK
     Route: 048
     Dates: start: 20130529, end: 20130619

REACTIONS (1)
  - Respiratory distress [Fatal]
